FAERS Safety Report 6335570-X (Version None)
Quarter: 2009Q3

REPORT INFORMATION
  Report Type: 
  Country: None (occurrence: None)
  Receive Date: 20090831
  Receipt Date: 20090821
  Transmission Date: 20100115
  Serious: Yes (Other)
  Sender: FDA-Public Use
  Company Number: FR-GENENTECH-289292

PATIENT

DRUGS (5)
  1. MABTHERA [Suspect]
     Indication: RENAL TRANSPLANT
     Dosage: 375 MG/M2, 1/WEEK
  2. MEDICATION (UNK INGREDIENT) [Concomitant]
     Indication: RENAL TRANSPLANT
  3. MYCOPHENOLATE MOFETIL [Concomitant]
     Indication: RENAL TRANSPLANT
  4. STEROIDS NOS [Concomitant]
     Indication: RENAL TRANSPLANT
  5. CALCINEURIN INHIBITORS NOS [Concomitant]
     Indication: RENAL TRANSPLANT

REACTIONS (8)
  - BK VIRUS INFECTION [None]
  - CYTOMEGALOVIRUS INFECTION [None]
  - GASTROINTESTINAL INFECTION [None]
  - HEPATITIS C [None]
  - PNEUMONITIS [None]
  - PYELONEPHRITIS [None]
  - SEPSIS [None]
  - SKIN INFECTION [None]
